FAERS Safety Report 8792702 (Version 2)
Quarter: 2012Q4

REPORT INFORMATION
  Report Type: 
  Country: JP (occurrence: JP)
  Receive Date: 20120918
  Receipt Date: 20120927
  Transmission Date: 20130627
  Serious: Yes (Hospitalization)
  Sender: FDA-Public Use
  Company Number: JP-SANOFI-AVENTIS-2012SA067625

PATIENT
  Age: 65 Year
  Sex: Male
  Weight: 52 kg

DRUGS (15)
  1. ELPLAT [Suspect]
     Indication: CARCINOMA OF THE APPENDIX
     Dosage: injection
83.7 mg/m2
     Route: 041
     Dates: start: 20120529, end: 20120529
  2. 5-FU [Suspect]
     Indication: CARCINOMA OF THE APPENDIX
     Dosage: 386.1 mg/m2
     Route: 040
     Dates: start: 20120529, end: 20120529
  3. 5-FU [Suspect]
     Indication: CARCINOMA OF THE APPENDIX
     Dosage: injection
     Route: 041
     Dates: start: 20120529, end: 20120529
  4. CALCIUM LEVOFOLINATE [Concomitant]
     Dates: start: 20120529, end: 20120529
  5. POLARAMINE [Concomitant]
     Dates: start: 20120529, end: 20120529
  6. ZANTAC [Concomitant]
     Dates: start: 20120529, end: 20120529
  7. KYTRIL [Concomitant]
     Dates: start: 20120529, end: 20120529
  8. DEXAMETHASONE SODIUM PHOSPHATE [Concomitant]
     Dates: start: 20120529, end: 20120529
  9. EMEND [Concomitant]
     Dates: start: 20120529, end: 20120530
  10. DEXAMETHASONE [Concomitant]
     Dates: start: 20120530, end: 20120530
  11. LACTEC [Concomitant]
     Dates: start: 20120531, end: 20120531
  12. PRIMPERAN [Concomitant]
     Dates: start: 20120531, end: 20120602
  13. SOLDEM 3A [Concomitant]
     Dates: start: 20120531, end: 20120602
  14. AMINO ACIDS NOS/ELECTROLYTES NOS/MALIC ACID [Concomitant]
     Dates: start: 20120531, end: 20120531
  15. ARGININE GLUTAMATE [Concomitant]
     Dates: start: 20120531, end: 20120601

REACTIONS (1)
  - Hyperammonaemia [Recovered/Resolved]
